FAERS Safety Report 4775414-0 (Version None)
Quarter: 2005Q3

REPORT INFORMATION
  Report Type: 
  Country: None (occurrence: None)
  Receive Date: 20050921
  Receipt Date: 20050921
  Transmission Date: 20060218
  Serious: Yes (Hospitalization)
  Sender: FDA-Public Use
  Company Number: None

PATIENT
  Age: 73 Year
  Sex: Female

DRUGS (1)
  1. PHOSPHO-SODA      FLEET [Suspect]
     Indication: DIAGNOSTIC PROCEDURE
     Dosage: ENTIRE CONTENTS    ONE-TIME   PO
     Route: 048
     Dates: start: 20050801, end: 20050801

REACTIONS (1)
  - RENAL FAILURE ACUTE [None]
